FAERS Safety Report 5957606-8 (Version None)
Quarter: 2008Q4

REPORT INFORMATION
  Report Type: 
  Country: None (occurrence: None)
  Receive Date: 20081107
  Receipt Date: 20081030
  Transmission Date: 20090506
  Serious: Yes (Hospitalization)
  Sender: FDA-Public Use
  Company Number: 2008BI029259

PATIENT
  Age: 46 Year
  Sex: Male

DRUGS (3)
  1. TYSABRI [Suspect]
     Indication: MULTIPLE SCLEROSIS
     Dosage: 300 MG; QM; IV
     Route: 042
     Dates: start: 20080708
  2. AVONEX [Concomitant]
  3. AVONEX [Concomitant]

REACTIONS (4)
  - DEPRESSION [None]
  - LOSS OF CONSCIOUSNESS [None]
  - NASAL CONGESTION [None]
  - SWELLING FACE [None]
